FAERS Safety Report 4545716-1 (Version None)
Quarter: 2005Q1

REPORT INFORMATION
  Report Type: 
  Country: None (occurrence: None)
  Receive Date: 20050104
  Receipt Date: 20050104
  Transmission Date: 20050727
  Serious: Yes (Hospitalization)
  Sender: FDA-Public Use
  Company Number: None

PATIENT
  Sex: Male
  Weight: 86 kg

DRUGS (2)
  1. COMBIVIR [Suspect]
     Indication: HIV INFECTION
     Dosage: 150/300 MG PO QHS
     Route: 048
     Dates: start: 19990801, end: 20040101
  2. EFAVIRENZ 600 MG [Suspect]
     Indication: HIV INFECTION
     Dosage: 600 MG PO BID
     Route: 048
     Dates: start: 20011022, end: 20040101

REACTIONS (1)
  - SMALL INTESTINAL OBSTRUCTION [None]
